FAERS Safety Report 11088332 (Version 1)
Quarter: 2015Q2

REPORT INFORMATION
  Report Type: Spontaneous
  Country: US (occurrence: None)
  Receive Date: 20150430
  Receipt Date: 20150430
  Transmission Date: 20150821
  Serious: Yes (Hospitalization, Other)
  Sender: FDA-Public Use
  Company Number: US-H14001-15-00585

PATIENT
  Age: 23 Year
  Sex: Female

DRUGS (9)
  1. CISPLATIN. [Suspect]
     Active Substance: CISPLATIN
     Indication: OVARIAN SERTOLI-LEYDIG CELL TUMOUR
     Dosage: (UNKNOWN, CYCLE 3), UNKNOWN? - STOPPED
  2. ANXIOLYTICS [Concomitant]
     Active Substance: UNSPECIFIED INGREDIENT
  3. DEXAMETHASONE. [Suspect]
     Active Substance: DEXAMETHASONE
     Indication: PROPHYLAXIS OF NAUSEA AND VOMITING
     Dosage: (UNKNOWN, CYCLE 2), UNKNOWN? - STOPPED
  4. DOPAMINE ANTAGONISTS [Suspect]
     Active Substance: UNSPECIFIED INGREDIENT
     Indication: PROPHYLAXIS OF NAUSEA AND VOMITING
  5. 5-HT BLOCKERS [Suspect]
     Active Substance: UNSPECIFIED INGREDIENT
     Indication: PROPHYLAXIS OF NAUSEA AND VOMITING
  6. BLEOMYCIN [Concomitant]
     Active Substance: BLEOMYCIN SULFATE
  7. ETOPOSIDE. [Concomitant]
     Active Substance: ETOPOSIDE
  8. NARCOTICS (OPIOIDS) [Concomitant]
     Active Substance: UNSPECIFIED INGREDIENT
  9. FOSAPREPITANT [Concomitant]
     Active Substance: FOSAPREPITANT

REACTIONS (10)
  - Electrocardiogram QT prolonged [None]
  - Blood pressure increased [None]
  - Presyncope [None]
  - Dizziness [None]
  - Bradycardia [None]
  - Nausea [None]
  - Drug interaction [None]
  - Malaise [None]
  - Asthenia [None]
  - Dehydration [None]
